FAERS Safety Report 18240535 (Version 1)
Quarter: 2020Q3

REPORT INFORMATION
  Report Type: Spontaneous
  Country: DE (occurrence: DE)
  Receive Date: 20200908
  Receipt Date: 20200908
  Transmission Date: 20201103
  Serious: Yes (Hospitalization, Other)
  Sender: FDA-Public Use
  Company Number: DE-AUROBINDO-AUR-APL-2020-046451

PATIENT
  Sex: Female

DRUGS (50)
  1. AMLODIPIN DEXCEL [AMLODIPINE MALEATE] [Suspect]
     Active Substance: AMLODIPINE MALEATE
     Indication: PRODUCT USED FOR UNKNOWN INDICATION
     Dosage: UNK
     Route: 065
     Dates: start: 20161024, end: 20170109
  2. DICLOFENAC RATIOPHARM [Suspect]
     Active Substance: DICLOFENAC
     Indication: PRODUCT USED FOR UNKNOWN INDICATION
     Dosage: UNK
     Route: 065
     Dates: start: 20171115, end: 20180608
  3. FOSFOMYCIN EBERTH [Suspect]
     Active Substance: FOSFOMYCIN TROMETHAMINE
     Indication: PRODUCT USED FOR UNKNOWN INDICATION
     Dosage: UNK
     Route: 065
     Dates: start: 20170819
  4. L?THYROXIN?HENNING [Suspect]
     Active Substance: LEVOTHYROXINE SODIUM
     Indication: PRODUCT USED FOR UNKNOWN INDICATION
     Dosage: UNK
     Route: 065
     Dates: start: 20160201
  5. TAVOR (LORAZEPAM) [Suspect]
     Active Substance: LORAZEPAM
     Indication: PRODUCT USED FOR UNKNOWN INDICATION
     Dosage: UNK
     Route: 065
     Dates: start: 20180713
  6. RAMIPRIL 5MG [Suspect]
     Active Substance: RAMIPRIL
     Indication: PRODUCT USED FOR UNKNOWN INDICATION
     Dosage: UNK
     Route: 065
     Dates: start: 20160412
  7. AMLODIPIN DEXCEL [AMLODIPINE MALEATE] [Suspect]
     Active Substance: AMLODIPINE MALEATE
     Dosage: UNK
     Route: 065
     Dates: start: 20171115
  8. CEFUROXIM HEUMANN [Suspect]
     Active Substance: CEFUROXIME AXETIL
     Indication: PRODUCT USED FOR UNKNOWN INDICATION
     Dosage: UNK
     Route: 065
     Dates: start: 20170731
  9. L?THYROXIN ARISTO [Suspect]
     Active Substance: LEVOTHYROXINE SODIUM
     Indication: PRODUCT USED FOR UNKNOWN INDICATION
     Dosage: UNK
     Route: 065
     Dates: start: 20161010
  10. METOPROLOL RATIOPHARM [Suspect]
     Active Substance: METOPROLOL
     Dosage: UNK
     Route: 065
     Dates: start: 20180608
  11. VALSACOR [Suspect]
     Active Substance: VALSARTAN
     Dosage: UNK
     Route: 065
     Dates: start: 20190716, end: 20191017
  12. CELESTENE N [Suspect]
     Active Substance: BETAMETHASONE
     Indication: PRODUCT USED FOR UNKNOWN INDICATION
     Dosage: UNK
     Route: 065
     Dates: start: 20171012
  13. L?THYROX HEXAL [Suspect]
     Active Substance: LEVOTHYROXINE SODIUM
     Dosage: UNK
     Route: 065
     Dates: start: 20180305, end: 20180608
  14. SIMVA [Suspect]
     Active Substance: SIMVASTATIN
     Dosage: UNK
     Route: 065
     Dates: start: 20170410, end: 20170619
  15. SPIRIVA [Suspect]
     Active Substance: TIOTROPIUM BROMIDE MONOHYDRATE
     Dosage: UNK
     Route: 065
     Dates: start: 20161216, end: 20170410
  16. AMLODIPIN DEXCEL [AMLODIPINE MALEATE] [Suspect]
     Active Substance: AMLODIPINE MALEATE
     Dosage: UNK
     Route: 065
     Dates: start: 20170410, end: 20170619
  17. L?THYROX HEXAL [Suspect]
     Active Substance: LEVOTHYROXINE SODIUM
     Dosage: UNK
     Route: 065
     Dates: start: 20170619, end: 20171115
  18. MINOCYCLIN RATIOPHARM [Suspect]
     Active Substance: MINOCYCLINE HYDROCHLORIDE
     Indication: PRODUCT USED FOR UNKNOWN INDICATION
     Dosage: UNK
     Route: 065
     Dates: start: 20170814
  19. PREDNISOLONE. [Suspect]
     Active Substance: PREDNISOLONE
     Indication: PRODUCT USED FOR UNKNOWN INDICATION
     Dosage: UNK
     Route: 065
     Dates: start: 20160404
  20. CEFUROX BASICS SUN [Suspect]
     Active Substance: CEFUROXIME AXETIL
     Indication: PRODUCT USED FOR UNKNOWN INDICATION
     Dosage: UNK
     Route: 065
     Dates: start: 20160927, end: 20171005
  21. DICLO 1A PHARMA [Suspect]
     Active Substance: DICLOFENAC SODIUM
     Indication: PRODUCT USED FOR UNKNOWN INDICATION
     Dosage: UNK
     Route: 065
     Dates: start: 20160303
  22. METOPROLOL RATIOPHARM [Suspect]
     Active Substance: METOPROLOL
     Dosage: UNK
     Route: 065
     Dates: start: 20170109, end: 20170323
  23. METOPROLOL RATIOPHARM [Suspect]
     Active Substance: METOPROLOL
     Dosage: UNK
     Route: 065
     Dates: start: 20170515, end: 20170619
  24. METOPROLOL RATIOPHARM [Suspect]
     Active Substance: METOPROLOL
     Dosage: UNK
     Route: 065
     Dates: start: 20170814, end: 20171005
  25. PANTOPRAZOL HEUMANN [Suspect]
     Active Substance: PANTOPRAZOLE SODIUM
     Indication: PRODUCT USED FOR UNKNOWN INDICATION
     Dosage: UNK
     Route: 065
     Dates: start: 20161216
  26. SPIRIVA [Suspect]
     Active Substance: TIOTROPIUM BROMIDE MONOHYDRATE
     Dosage: UNK
     Route: 065
     Dates: start: 20171214, end: 20180305
  27. SPIRIVA [Suspect]
     Active Substance: TIOTROPIUM BROMIDE MONOHYDRATE
     Dosage: UNK
     Route: 065
     Dates: start: 20180608
  28. VALSACOR [Suspect]
     Active Substance: VALSARTAN
     Indication: HYPERTENSION
     Dosage: UNK
     Route: 065
     Dates: start: 20190716, end: 20191017
  29. SIMVA [Suspect]
     Active Substance: SIMVASTATIN
     Dosage: UNK
     Route: 065
     Dates: start: 20161010, end: 20170109
  30. SPIRIVA [Suspect]
     Active Substance: TIOTROPIUM BROMIDE MONOHYDRATE
     Dosage: UNK
     Route: 065
     Dates: start: 20161117
  31. SPIRIVA [Suspect]
     Active Substance: TIOTROPIUM BROMIDE MONOHYDRATE
     Dosage: UNK
     Route: 065
     Dates: start: 20170619, end: 20170914
  32. VALSARTAN DURA [Suspect]
     Active Substance: VALSARTAN
     Dosage: 240 MILLIGRAM, ONCE A DAY, PM (NOT REPORTED THE EVENING TOTAL 240 MG DAILY)
     Route: 065
     Dates: start: 201906, end: 201907
  33. L?THYROX HEXAL [Suspect]
     Active Substance: LEVOTHYROXINE SODIUM
     Indication: PRODUCT USED FOR UNKNOWN INDICATION
     Dosage: UNK
     Route: 065
     Dates: start: 20170109, end: 20170410
  34. METOPROLOL ABZ [Suspect]
     Active Substance: METOPROLOL TARTRATE
     Indication: PRODUCT USED FOR UNKNOWN INDICATION
     Dosage: UNK
     Route: 065
     Dates: start: 20160419
  35. METOPROLOL RATIOPHARM [Suspect]
     Active Substance: METOPROLOL
     Dosage: UNK
     Route: 065
     Dates: start: 20171115, end: 20180305
  36. SIMVA [Suspect]
     Active Substance: SIMVASTATIN
     Indication: PRODUCT USED FOR UNKNOWN INDICATION
     Dosage: UNK
     Route: 065
     Dates: start: 20160512
  37. SKID [MINOCYCLINE HYDROCHLORIDE] [Suspect]
     Active Substance: MINOCYCLINE HYDROCHLORIDE
     Indication: PRODUCT USED FOR UNKNOWN INDICATION
     Dosage: UNK
     Route: 065
     Dates: start: 20161216
  38. SPIRIVA [Suspect]
     Active Substance: TIOTROPIUM BROMIDE MONOHYDRATE
     Indication: PRODUCT USED FOR UNKNOWN INDICATION
     Dosage: UNK
     Route: 065
     Dates: start: 20161010, end: 20170210
  39. VALSARTAN DURA [Suspect]
     Active Substance: VALSARTAN
     Indication: HYPERTENSION
     Dosage: 80 MILLIGRAM, TWO TIMES A DAY (IN THE MORNING AND EVENING)
     Route: 065
  40. VALSARTAN 160MG [Suspect]
     Active Substance: VALSARTAN
     Indication: HYPERTENSION
     Dosage: UNK
     Route: 065
     Dates: start: 20181213, end: 201903
  41. AZITHROMYCIN HEC [Suspect]
     Active Substance: AZITHROMYCIN
     Indication: PRODUCT USED FOR UNKNOWN INDICATION
     Dosage: UNK
     Route: 065
     Dates: start: 20160920
  42. BERODUAL N [Suspect]
     Active Substance: FENOTEROL HYDROBROMIDE\IPRATROPIUM BROMIDE
     Indication: PRODUCT USED FOR UNKNOWN INDICATION
     Dosage: UNK
     Route: 065
     Dates: start: 20160317, end: 20160920
  43. CLARILIND [Suspect]
     Active Substance: CLARITHROMYCIN
     Indication: PRODUCT USED FOR UNKNOWN INDICATION
     Dosage: UNK
     Route: 065
     Dates: start: 20160310
  44. JEXT [Suspect]
     Active Substance: EPINEPHRINE BITARTRATE
     Indication: PRODUCT USED FOR UNKNOWN INDICATION
     Dosage: UNK
     Route: 065
     Dates: start: 20171012
  45. L?THYROXIN ARISTO [Suspect]
     Active Substance: LEVOTHYROXINE SODIUM
     Indication: PRODUCT USED FOR UNKNOWN INDICATION
     Dosage: UNK
     Route: 065
     Dates: start: 20160412
  46. METOPROLOL RATIOPHARM [Suspect]
     Active Substance: METOPROLOL
     Indication: PRODUCT USED FOR UNKNOWN INDICATION
     Dosage: UNK
     Route: 065
     Dates: start: 20161010, end: 20161117
  47. VALSARTAN 1A PHARMA [Suspect]
     Active Substance: VALSARTAN
     Indication: HYPERTENSION
     Dosage: UNK
     Route: 065
     Dates: start: 20170816, end: 201709
  48. VALSARTAN DURA [Suspect]
     Active Substance: VALSARTAN
     Dosage: 160 MILLIGRAM, ONCE A DAY
     Route: 065
     Dates: start: 201610, end: 201706
  49. VALSARTAN DURA [Suspect]
     Active Substance: VALSARTAN
     Dosage: 240 MILLIGRAM, ONCE A DAY (1 IN MORNING AND 1/2 IN EVENING)
     Route: 065
     Dates: start: 201709, end: 201811
  50. VALSACOR [Suspect]
     Active Substance: VALSARTAN
     Indication: HYPERTENSION
     Dosage: UNK
     Route: 065
     Dates: start: 20190304, end: 20190423

REACTIONS (13)
  - Panic attack [Unknown]
  - Anxiety [Unknown]
  - Impaired quality of life [Not Recovered/Not Resolved]
  - Fear of disease [Unknown]
  - Fatigue [Unknown]
  - Sense of oppression [Unknown]
  - Depression [Not Recovered/Not Resolved]
  - Hypertension [Unknown]
  - Dyspnoea [Unknown]
  - Hyperhidrosis [Unknown]
  - Nausea [Unknown]
  - Mental impairment [Not Recovered/Not Resolved]
  - Dizziness [Unknown]
